FAERS Safety Report 11419862 (Version 1)
Quarter: 2015Q3

REPORT INFORMATION
  Report Type: Spontaneous
  Country: US (occurrence: None)
  Receive Date: 20150825
  Receipt Date: 20150825
  Transmission Date: 20151125
  Serious: No
  Sender: FDA-Public Use
  Company Number: None

PATIENT
  Age: 8 Month
  Sex: Female
  Weight: 7.71 kg

DRUGS (1)
  1. BABY TEETHING [Suspect]
     Active Substance: ATROPA BELLADONNA\CALCIUM PHOSPHATE\CHAMOMILE\COFFEA ARABICA FRUIT
     Indication: TEETHING
     Dosage: 2 PILLS
     Route: 048
     Dates: start: 20150823, end: 20150823

REACTIONS (3)
  - Dyskinesia [None]
  - Agitation [None]
  - Muscle twitching [None]

NARRATIVE: CASE EVENT DATE: 20150823
